FAERS Safety Report 6092247-6 (Version None)
Quarter: 2009Q1

REPORT INFORMATION
  Report Type: 
  Country: None (occurrence: None)
  Receive Date: 20090225
  Receipt Date: 20090218
  Transmission Date: 20090719
  Serious: Yes (Other)
  Sender: FDA-Public Use
  Company Number: A0769122A

PATIENT
  Age: 67 Year
  Sex: Female

DRUGS (6)
  1. COREG CR [Suspect]
     Indication: HYPERTENSION
     Route: 048
     Dates: start: 20080101
  2. COUMADIN [Concomitant]
  3. PRAVACHOL [Concomitant]
  4. BENICAR [Concomitant]
  5. PREMARIN [Concomitant]
  6. VITAMINS [Concomitant]

REACTIONS (3)
  - DEPRESSION [None]
  - LISTLESS [None]
  - THROMBOSIS [None]
